FAERS Safety Report 10704954 (Version 1)
Quarter: 2015Q1

REPORT INFORMATION
  Report Type: Spontaneous
  Country: US (occurrence: US)
  Receive Date: 20150112
  Receipt Date: 20150112
  Transmission Date: 20150721
  Serious: No
  Sender: FDA-Public Use
  Company Number: US-BAYER-2015-004124

PATIENT
  Age: 47 Year
  Sex: Male
  Weight: 95.24 kg

DRUGS (5)
  1. CHLORELLA VULGARIS [Concomitant]
     Active Substance: CHLORELLA VULGARIS
  2. COQ10 [Concomitant]
     Active Substance: UBIDECARENONE
  3. MULTIVITAMIN [Concomitant]
     Active Substance: VITAMINS
  4. ALEVE [Suspect]
     Active Substance: NAPROXEN SODIUM
     Indication: TOOTHACHE
     Dosage: UNK DF, OTHER
     Route: 048
     Dates: start: 201406, end: 201406
  5. PAIN STOPPER EXTRA [Suspect]
     Active Substance: ACETAMINOPHEN\ASPIRIN\CAFFEINE\SALICYLAMIDE
     Indication: TOOTHACHE
     Dosage: UNK DF, OTHER
     Route: 048
     Dates: start: 201406, end: 201406

REACTIONS (2)
  - Drug ineffective [Unknown]
  - Inappropriate schedule of drug administration [Unknown]

NARRATIVE: CASE EVENT DATE: 201406
